FAERS Safety Report 7980762-7 (Version None)
Quarter: 2011Q4

REPORT INFORMATION
  Report Type: 
  Country: None (occurrence: None)
  Receive Date: 20111214
  Receipt Date: 20111202
  Transmission Date: 20120403
  Serious: Yes (Disabling)
  Sender: FDA-Public Use
  Company Number: FI-ELI_LILLY_AND_COMPANY-FI201112001054

PATIENT
  Sex: Female

DRUGS (2)
  1. SERTRALINE HYDROCHLORIDE [Concomitant]
     Dosage: 100 MG, QD
     Route: 048
     Dates: end: 20110201
  2. CYMBALTA [Suspect]
     Indication: DEPRESSION
     Dosage: 60 MG, QD
     Route: 048
     Dates: start: 20100201

REACTIONS (3)
  - SUBCUTANEOUS ABSCESS [None]
  - FURUNCLE [None]
  - SCAR [None]
